FAERS Safety Report 11461202 (Version 1)
Quarter: 2015Q3

REPORT INFORMATION
  Report Type: Spontaneous
  Country: US (occurrence: US)
  Receive Date: 20150831
  Receipt Date: 20150831
  Transmission Date: 20151125
  Serious: Yes (Hospitalization)
  Sender: FDA-Public Use
  Company Number: US-ELI_LILLY_AND_COMPANY-US201007001956

PATIENT
  Age: 69 Year
  Sex: Female

DRUGS (26)
  1. SINEMET [Concomitant]
     Active Substance: CARBIDOPA\LEVODOPA
  2. TICLID [Concomitant]
     Active Substance: TICLOPIDINE HYDROCHLORIDE
  3. HYDROCHLOORTHIAZIDE [Concomitant]
     Active Substance: HYDROCHLOROTHIAZIDE
  4. GEMFIBROZIL. [Concomitant]
     Active Substance: GEMFIBROZIL
  5. METHOTREXATE [Concomitant]
     Active Substance: METHOTREXATE
  6. DETROL [Concomitant]
     Active Substance: TOLTERODINE TARTRATE
  7. ALBUTEROL. [Concomitant]
     Active Substance: ALBUTEROL
  8. CELEBREX [Concomitant]
     Active Substance: CELECOXIB
  9. KLOR-CON [Concomitant]
     Active Substance: POTASSIUM CHLORIDE
  10. NEURONTIN [Concomitant]
     Active Substance: GABAPENTIN
  11. ADVAIR HFA [Concomitant]
     Active Substance: FLUTICASONE PROPIONATE\SALMETEROL XINAFOATE
  12. LORTAB [Concomitant]
     Active Substance: ACETAMINOPHEN\HYDROCODONE BITARTRATE
  13. FISH OIL [Concomitant]
     Active Substance: FISH OIL
  14. NORVASC [Concomitant]
     Active Substance: AMLODIPINE BESYLATE
  15. LEVOTHYROXINE. [Concomitant]
     Active Substance: LEVOTHYROXINE
  16. FOLIC ACID. [Concomitant]
     Active Substance: FOLIC ACID
  17. METFORMIN HCL [Concomitant]
     Active Substance: METFORMIN HYDROCHLORIDE
  18. ACTONEL [Concomitant]
     Active Substance: RISEDRONATE SODIUM
  19. FAMCICLOVIR. [Concomitant]
     Active Substance: FAMCICLOVIR
  20. CYMBALTA [Suspect]
     Active Substance: DULOXETINE HYDROCHLORIDE
     Indication: DEPRESSION
     Dosage: 60 MG, UNKNOWN
     Route: 065
     Dates: start: 2008, end: 20100630
  21. WELLBUTRIN [Concomitant]
     Active Substance: BUPROPION HYDROCHLORIDE
  22. CITRICAL [Concomitant]
     Active Substance: CALCIUM CITRATE
  23. METOCLOPRAMIDE. [Concomitant]
     Active Substance: METOCLOPRAMIDE
  24. NEXIUM [Concomitant]
     Active Substance: ESOMEPRAZOLE MAGNESIUM
  25. BENEFIBER [Concomitant]
     Active Substance: STARCH, WHEAT
  26. VITAMIN B COMPLEX [Concomitant]
     Active Substance: CYANOCOBALAMIN\DEXPANTHENOL\NIACINAMIDE\PYRIDOXINE HYDROCHLORIDE\RIBOFLAVIN 5^-PHOSPHATE SODIUM\THIAMINE HYDROCHLORIDE\VITAMIN B COMPLEX

REACTIONS (3)
  - Urinary tract infection [Unknown]
  - Intentional product misuse [Unknown]
  - Confusional state [Unknown]

NARRATIVE: CASE EVENT DATE: 20100620
